FAERS Safety Report 4312433-2 (Version None)
Quarter: 2004Q1

REPORT INFORMATION
  Report Type: 
  Country: None (occurrence: None)
  Receive Date: 20040304
  Receipt Date: 20040304
  Transmission Date: 20041129
  Serious: Yes (Disabling)
  Sender: FDA-Public Use
  Company Number: None

PATIENT
  Age: 47 Year
  Sex: Female
  Weight: 67.1324 kg

DRUGS (4)
  1. SEPTOCAINE [Suspect]
     Indication: LOCAL ANAESTHESIA
     Dates: start: 20030429
  2. SEPTOCAINE [Suspect]
     Indication: TOOTH EXTRACTION
     Dates: start: 20030429
  3. ESTROPRPATE [Concomitant]
  4. LORAZEPAM [Concomitant]

REACTIONS (19)
  - BURNING SENSATION [None]
  - COLITIS [None]
  - DYSPNOEA [None]
  - EAR DISORDER [None]
  - EAR INFECTION [None]
  - EAR PAIN [None]
  - EYE PAIN [None]
  - FACIAL PAIN [None]
  - INFECTION [None]
  - INFLAMMATION [None]
  - INJECTION SITE NERVE DAMAGE [None]
  - INJECTION SITE PAIN [None]
  - NECK PAIN [None]
  - NEURALGIA [None]
  - OEDEMA [None]
  - PAIN [None]
  - SENSATION OF PRESSURE IN EAR [None]
  - SINUS DISORDER [None]
  - SINUSITIS [None]
